FAERS Safety Report 14702929 (Version 1)
Quarter: 2018Q2

REPORT INFORMATION
  Report Type: Spontaneous
  Country: GB (occurrence: GB)
  Receive Date: 20180402
  Receipt Date: 20180402
  Transmission Date: 20180711
  Serious: Yes (Other)
  Sender: FDA-Public Use
  Company Number: GB-TEVA-2018-GB-877778

PATIENT
  Age: 30 Year
  Sex: Male
  Weight: 78.01 kg

DRUGS (9)
  1. TOPIRAMATE. [Suspect]
     Active Substance: TOPIRAMATE
     Route: 048
  2. SERTRALINE [Concomitant]
     Active Substance: SERTRALINE HYDROCHLORIDE
     Dosage: 50 MILLIGRAM DAILY;
     Route: 065
     Dates: start: 20171214
  3. SODIUM VALPROATE [Concomitant]
     Active Substance: VALPROATE SODIUM
     Indication: MIGRAINE PROPHYLAXIS
     Dosage: AT NIGHT
     Dates: start: 20180206
  4. WARFARIN [Concomitant]
     Active Substance: WARFARIN
     Dosage: ADJUST DOSAGE ACCORDING TO INSTRUCTIONS FROM ANTICOAGULANT CLINIC OR YELLOW BOOK.
     Route: 065
  5. AMITRIPTYLINE [Concomitant]
     Active Substance: AMITRIPTYLINE
     Dosage: 10 MILLIGRAM DAILY; AT NIGHT
     Route: 065
     Dates: start: 20171128
  6. MIGRALEVE [Concomitant]
     Active Substance: ACETAMINOPHEN\BUCLIZINE HYDROCHLORIDE\CODEINE
     Dosage: 3 DOSAGE FORMS DAILY;
     Route: 065
     Dates: start: 20171114
  7. WARFARIN [Concomitant]
     Active Substance: WARFARIN
     Route: 065
  8. ATORVASTATIN [Concomitant]
     Active Substance: ATORVASTATIN
     Dosage: 20 MILLIGRAM DAILY; AT NIGHT
     Route: 065
     Dates: start: 20171115
  9. GABAPENTIN. [Concomitant]
     Active Substance: GABAPENTIN
     Indication: NEURALGIA
     Dosage: 2 UP TO 3 TIMES A DAY
     Route: 065
     Dates: start: 20171123

REACTIONS (2)
  - Suicidal ideation [Unknown]
  - Depressed mood [Recovered/Resolved]

NARRATIVE: CASE EVENT DATE: 20180205
